FAERS Safety Report 4916428-7 (Version None)
Quarter: 2006Q1

REPORT INFORMATION
  Report Type: 
  Country: None (occurrence: None)
  Receive Date: 20060214
  Receipt Date: 20060201
  Transmission Date: 20060701
  Serious: Yes (Other)
  Sender: FDA-Public Use
  Company Number: FABR-11359

PATIENT
  Age: 22 Year
  Sex: Male
  Weight: 58 kg

DRUGS (2)
  1. FABRAZYME [Suspect]
     Indication: FABRY'S DISEASE
     Dosage: 5 MG Q2WKS IV
     Route: 042
  2. FABRAZYME [Suspect]
     Indication: FABRY'S DISEASE
     Dosage: 55 MG Q2WKS  IV
     Route: 042
     Dates: start: 20051007

REACTIONS (5)
  - BODY TEMPERATURE INCREASED [None]
  - HEART RATE INCREASED [None]
  - RHINORRHOEA [None]
  - SKIN TEST POSITIVE [None]
  - URTICARIA [None]
